FAERS Safety Report 8398224-4 (Version None)
Quarter: 2012Q2

REPORT INFORMATION
  Report Type: 
  Country: None (occurrence: None)
  Receive Date: 20120525
  Receipt Date: 20120512
  Transmission Date: 20120825
  Serious: Yes (Hospitalization)
  Sender: FDA-Public Use
  Company Number: 2012AP001434

PATIENT
  Age: 5 Year
  Sex: Male

DRUGS (5)
  1. LAMOTRIGINE [Suspect]
     Indication: PRODUCT USED FOR UNKNOWN INDICATION
     Dosage: 100 MG; BID
  2. RISPERIDONE [Suspect]
     Indication: PRODUCT USED FOR UNKNOWN INDICATION
  3. TOPIRAMATE [Suspect]
     Indication: PRODUCT USED FOR UNKNOWN INDICATION
  4. OXCARBAZEPINE [Suspect]
     Indication: PRODUCT USED FOR UNKNOWN INDICATION
  5. LEVETIRACETAM [Suspect]
     Indication: PRODUCT USED FOR UNKNOWN INDICATION

REACTIONS (15)
  - MOOD ALTERED [None]
  - DYSKINESIA [None]
  - PSYCHOMOTOR HYPERACTIVITY [None]
  - AGGRESSION [None]
  - SENSORY DISTURBANCE [None]
  - RASH [None]
  - DRUG INEFFECTIVE [None]
  - NEGATIVISM [None]
  - GAIT DISTURBANCE [None]
  - HYPERSEXUALITY [None]
  - COORDINATION ABNORMAL [None]
  - THROMBOCYTOPENIA [None]
  - MUSCULAR WEAKNESS [None]
  - ATAXIA [None]
  - CHOREA [None]
